FAERS Safety Report 11767267 (Version 3)
Quarter: 2017Q1

REPORT INFORMATION
  Report Type: Spontaneous
  Country: US (occurrence: US)
  Receive Date: 20151123
  Receipt Date: 20170209
  Transmission Date: 20170428
  Serious: No
  Sender: FDA-Public Use
  Company Number: US-PFIZER INC-2015386468

PATIENT
  Age: 58 Year
  Sex: Female

DRUGS (36)
  1. MEDROL [Concomitant]
     Active Substance: METHYLPREDNISOLONE
     Dosage: 4 MG, UNK (1 (ONE) PACKAGE (ORAL) USED FOR 6 DAYS)
     Route: 048
     Dates: start: 20160106
  2. PERCOCET [Concomitant]
     Active Substance: ACETAMINOPHEN\OXYCODONE HYDROCHLORIDE
     Dosage: 1 DF, 3X/DAY (SPECIFIC DOSE UNKNOWN (ORAL) 1 EVERY 8 HOURS)
     Route: 048
  3. QUINAPRIL. [Concomitant]
     Active Substance: QUINAPRIL
     Dosage: 40 MG, 1X/DAY
     Route: 048
  4. QUINAPRIL. [Concomitant]
     Active Substance: QUINAPRIL
     Dosage: 20 MG, UNK (2X)
     Route: 048
  5. OMEPRAZOLE. [Concomitant]
     Active Substance: OMEPRAZOLE
     Dosage: 40 MG, 2X/DAY
     Route: 048
  6. HYDROCHLOROTHIAZIDE. [Concomitant]
     Active Substance: HYDROCHLOROTHIAZIDE
     Dosage: 25 MG, DAILY
     Route: 048
  7. METHOCARBAMOL. [Concomitant]
     Active Substance: METHOCARBAMOL
     Dosage: 1500 MG, UNK (3X)
  8. METFORMIN HCL [Concomitant]
     Active Substance: METFORMIN HYDROCHLORIDE
     Dosage: 1000 MG, 2X/DAY
     Route: 048
     Dates: start: 20151002
  9. ALBUTEROL. [Concomitant]
     Active Substance: ALBUTEROL
     Dosage: 2 DF, AS NEEDED  (90 MCG/ACT, 2 PUFF)
     Route: 055
  10. ADVAIR HFA [Concomitant]
     Active Substance: FLUTICASONE PROPIONATE\SALMETEROL XINAFOATE
     Dosage: UNK, 2X/DAY, [FLUTICASONE PROPIONATE 500 MCG]/[ SALMETEROL XINAFOATE 50 MCG]
     Route: 055
     Dates: start: 20160301
  11. LIDOCAINE. [Concomitant]
     Active Substance: LIDOCAINE
     Dosage: 1 DF, 1X/DAY (5% PATCH, 1 PATCH (EXTERNAL) EVERY TWENTY FOUR HOURS)
  12. OMEPRAZOLE. [Concomitant]
     Active Substance: OMEPRAZOLE
     Dosage: 20 MG, 2X/DAY
     Route: 048
  13. HYDROCHLOROTHIAZIDE. [Concomitant]
     Active Substance: HYDROCHLOROTHIAZIDE
     Dosage: 25 MG, 1X/DAY
     Route: 048
  14. JANUVIA [Concomitant]
     Active Substance: SITAGLIPTIN PHOSPHATE
     Dosage: 100 MG, DAILY
     Route: 048
     Dates: start: 20160303
  15. LIPITOR [Concomitant]
     Active Substance: ATORVASTATIN CALCIUM
     Dosage: 20 MG, UNK
  16. LYRICA [Suspect]
     Active Substance: PREGABALIN
     Indication: NEUROPATHY PERIPHERAL
     Dosage: 100 MG, UNK
     Route: 048
  17. LYRICA [Suspect]
     Active Substance: PREGABALIN
     Indication: POLYNEUROPATHY
     Dosage: 400 MG, DAILY (1 (ONE) CAPSULE 1 IN AM, 1 AT NOON, 2 IN EVENING)
     Route: 048
     Dates: start: 20151019
  18. SIMVASTATIN. [Concomitant]
     Active Substance: SIMVASTATIN
     Dosage: 20 MG, 1X/DAY (AT BEDTIME)
     Route: 048
  19. OXYCODONE AND ACETAMINOPHEN [Concomitant]
     Active Substance: ACETAMINOPHEN\OXYCODONE HYDROCHLORIDE
     Dosage: 1 DF, AS NEEDED (OXYCODONE 10MG)/(ACETAMINOPHEN 325 MG) THREE TIMES DAILY
  20. ZOFRAN [Concomitant]
     Active Substance: ONDANSETRON HYDROCHLORIDE
     Dosage: 4 MG, AS NEEDED (1 (ONE) TABLET (ORAL) FOUR TIMES DAILY, AS NEEDED)
     Route: 048
     Dates: start: 20151202
  21. OMEPRAZOLE. [Concomitant]
     Active Substance: OMEPRAZOLE
     Dosage: 40 MG, 1X/DAY
     Route: 048
     Dates: start: 20151202
  22. OMEPRAZOLE. [Concomitant]
     Active Substance: OMEPRAZOLE
     Dosage: 40 MG, DAILY
     Route: 048
     Dates: start: 20160301
  23. METHOCARBAMOL. [Concomitant]
     Active Substance: METHOCARBAMOL
     Dosage: 500 MG, 3X/DAY
     Route: 048
  24. LYRICA [Suspect]
     Active Substance: PREGABALIN
     Dosage: 400 MG, DAILY, (1 IN AM, 1 AT NOON, 2 IN EVENING)
     Route: 048
     Dates: start: 20160607
  25. METHADONE HCL [Concomitant]
     Active Substance: METHADONE HYDROCHLORIDE
     Dosage: 10 MG, 3X/DAY
     Route: 048
  26. LINZESS [Concomitant]
     Active Substance: LINACLOTIDE
     Dosage: 145 UG, 1X/DAY
     Route: 048
     Dates: start: 20151204
  27. BACLOFEN. [Concomitant]
     Active Substance: BACLOFEN
     Dosage: 10 MG, AS NEEDED 1 TAB (ORAL) THREE TIMES DAILY AS NEEDED
     Route: 048
  28. OXYCODONE HYDROCHLORIDE. [Concomitant]
     Active Substance: OXYCODONE HYDROCHLORIDE
     Dosage: UNK [10/325]
  29. ADVAIR HFA [Concomitant]
     Active Substance: FLUTICASONE PROPIONATE\SALMETEROL XINAFOATE
     Dosage: UNK, 2X/DAY (1 (ONE) AERO POW BR ACT (INHALATION)
     Route: 055
     Dates: start: 20160106
  30. METFORMIN HCL [Concomitant]
     Active Substance: METFORMIN HYDROCHLORIDE
     Dosage: 1000 MG, 2X/DAY
     Route: 048
     Dates: start: 20170112
  31. ALBUTEROL SULFATE. [Concomitant]
     Active Substance: ALBUTEROL SULFATE
     Dosage: UNK, AS NEEDED (1 (ONE) NEBULIZED SOLN (INHALATION) EVERY SIX HOURS, AS NEEDED)
     Route: 055
     Dates: start: 20151210
  32. INVOKANA [Concomitant]
     Active Substance: CANAGLIFLOZIN
     Indication: TYPE 2 DIABETES MELLITUS
     Dosage: 100 MG, DAILY
     Route: 048
     Dates: start: 20161212
  33. JANUVIA [Concomitant]
     Active Substance: SITAGLIPTIN PHOSPHATE
     Dosage: 50 MG, DAILY (100 MG TABLET, 1/2 (ONE HALF) TABLET)
     Route: 048
     Dates: start: 20150618
  34. PROMETHAZINE HCL [Concomitant]
     Active Substance: PROMETHAZINE HYDROCHLORIDE
     Dosage: 25 MG, AS NEEDED (1 TAB (ORAL) THREE TIMES DAILY, AS NEEDED)
     Route: 048
  35. ALBUTEROL SULFATE. [Concomitant]
     Active Substance: ALBUTEROL SULFATE
     Dosage: 1 DF, AS NEEDED (1 (ONE) NEBULIZED SOLN (INHALATION) EVERY SIX HOURS)
     Route: 055
     Dates: start: 20160301
  36. NORCO [Concomitant]
     Active Substance: ACETAMINOPHEN\HYDROCODONE BITARTRATE
     Dosage: HYDROCODONE BITARTRATE, PARACETAMOL (5-325 MG) 1 TABLET TWO TIMES DAILY AS NEEDED
     Route: 048
     Dates: start: 20151007

REACTIONS (2)
  - Feeling abnormal [Unknown]
  - Pain in extremity [Unknown]
